FAERS Safety Report 5264733-X (Version None)
Quarter: 2007Q1

REPORT INFORMATION
  Report Type: 
  Country: None (occurrence: None)
  Receive Date: 20061124
  Receipt Date: 20060822
  Transmission Date: 20070707
  Serious: Yes (Disabling, Other)
  Sender: FDA-Public Use
  Company Number: WAES 0607USA03678

PATIENT
  Age: 42 Year
  Sex: Male
  Weight: 92.0802 kg

DRUGS (3)
  1. TAB VYTORIN 10-40 MG [Suspect]
     Indication: BLOOD CHOLESTEROL INCREASED
     Dosage: SEE IMAGE
     Route: 048
     Dates: start: 20050903, end: 20060101
  2. TAB VYTORIN 10-40 MG [Suspect]
     Indication: BLOOD CHOLESTEROL INCREASED
     Dosage: SEE IMAGE
     Route: 048
     Dates: start: 20060101, end: 20060713
  3. ... [Concomitant]

REACTIONS (1)
  - RHABDOMYOLYSIS [None]
